FAERS Safety Report 19828435 (Version 5)
Quarter: 2022Q1

REPORT INFORMATION
  Report Type: Report from Study
  Country: GB (occurrence: GB)
  Receive Date: 20210914
  Receipt Date: 20220131
  Transmission Date: 20220424
  Serious: Yes (Hospitalization, Other)
  Sender: FDA-Public Use
  Company Number: GB-ROCHE-2677215

PATIENT
  Age: 71 Year
  Sex: Female
  Weight: 54 kg

DRUGS (69)
  1. MORPHINE SULFATE [Suspect]
     Active Substance: MORPHINE SULFATE
     Indication: Pain
     Dosage: UNK
     Route: 065
     Dates: start: 20200825
  2. MORPHINE SULFATE [Suspect]
     Active Substance: MORPHINE SULFATE
     Dosage: 0.5 DAILYUNK
     Route: 065
     Dates: start: 20200731
  3. MORPHINE SULFATE [Suspect]
     Active Substance: MORPHINE SULFATE
     Dosage: UNK
     Route: 065
     Dates: start: 20200727
  4. MORPHINE SULFATE [Suspect]
     Active Substance: MORPHINE SULFATE
     Dosage: UNK
     Route: 065
     Dates: start: 20200828
  5. CIPROFLOXACIN [Suspect]
     Active Substance: CIPROFLOXACIN
     Indication: Prophylaxis
     Dosage: 0.5 DAILY
     Route: 065
     Dates: start: 20200827
  6. CYCLIZINE [Suspect]
     Active Substance: CYCLIZINE
     Indication: Vomiting
     Dosage: UNK (TIME INTERVAL)
     Route: 065
  7. CYCLIZINE [Suspect]
     Active Substance: CYCLIZINE
     Indication: Neutropenic sepsis
     Dosage: UNK, 0.25 DAY
     Route: 065
  8. CYCLIZINE [Suspect]
     Active Substance: CYCLIZINE
     Dosage: 0.25 UNK, DAILY
     Route: 065
  9. CYCLIZINE [Suspect]
     Active Substance: CYCLIZINE
     Dosage: 0.25 DAILY
  10. CYCLIZINE [Suspect]
     Active Substance: CYCLIZINE
     Dosage: 0.25 DAILY
  11. TIOTROPIUM [Suspect]
     Active Substance: TIOTROPIUM
     Indication: Chronic obstructive pulmonary disease
     Dosage: UNK
     Route: 065
  12. TIOTROPIUM [Suspect]
     Active Substance: TIOTROPIUM
     Dosage: UNK, DAILY
     Route: 065
  13. TIOTROPIUM [Suspect]
     Active Substance: TIOTROPIUM
     Dosage: UNK, DAILY
     Route: 065
  14. TIOTROPIUM [Suspect]
     Active Substance: TIOTROPIUM
     Dosage: UNK, DAILY
  15. TIOTROPIUM [Suspect]
     Active Substance: TIOTROPIUM
     Dosage: UNK, DAILY
  16. LINEZOLID [Suspect]
     Active Substance: LINEZOLID
     Indication: Neutropenic sepsis
     Dosage: UNK
     Route: 065
     Dates: start: 20200830
  17. CLOPIDOGREL [Suspect]
     Active Substance: CLOPIDOGREL BISULFATE
     Indication: Hypertension
     Dosage: UNK
     Route: 065
  18. CLOPIDOGREL [Suspect]
     Active Substance: CLOPIDOGREL BISULFATE
     Dosage: UNK, DAILY
     Route: 065
  19. CLOPIDOGREL [Suspect]
     Active Substance: CLOPIDOGREL BISULFATE
     Dosage: UNK, DAILY
     Route: 065
  20. CLOPIDOGREL [Suspect]
     Active Substance: CLOPIDOGREL BISULFATE
     Dosage: UNK, DAILY
  21. CLOPIDOGREL [Suspect]
     Active Substance: CLOPIDOGREL BISULFATE
     Dosage: UNK, DAILY
  22. LANSOPRAZOLE [Suspect]
     Active Substance: LANSOPRAZOLE
     Indication: Prophylaxis
     Dosage: UNK UNK, DAILY
     Route: 065
     Dates: start: 20170101
  23. AMOXICILLIN [Suspect]
     Active Substance: AMOXICILLIN
     Indication: Product used for unknown indication
     Dosage: UNK
     Route: 065
     Dates: start: 20200810, end: 20200816
  24. AMLODIPINE [Suspect]
     Active Substance: AMLODIPINE BESYLATE
     Indication: Hypertension
     Dosage: UNK
     Route: 065
  25. AMLODIPINE [Suspect]
     Active Substance: AMLODIPINE BESYLATE
     Dosage: UNK, DAILY
     Route: 065
  26. AMLODIPINE [Suspect]
     Active Substance: AMLODIPINE BESYLATE
     Dosage: UNK, DAILY
     Route: 065
  27. AMLODIPINE [Suspect]
     Active Substance: AMLODIPINE BESYLATE
     Dosage: UNK, DAILY
  28. AMLODIPINE [Suspect]
     Active Substance: AMLODIPINE BESYLATE
     Dosage: UNK, DAILY
  29. VORICONAZOLE [Suspect]
     Active Substance: VORICONAZOLE
     Indication: Neutropenic sepsis
     Dosage: UNK, DAILY
     Route: 065
     Dates: start: 20200830
  30. FORMOTEROL [Suspect]
     Active Substance: FORMOTEROL
     Indication: Hypertension
     Dosage: 0.5 MG, 0.5 DAY
     Route: 065
     Dates: start: 20200301
  31. CARBOPLATIN [Suspect]
     Active Substance: CARBOPLATIN
     Indication: Non-small cell lung cancer
     Dosage: 450 MG, DAILY
     Route: 065
     Dates: start: 20200729
  32. BENZYDAMINE [Suspect]
     Active Substance: BENZYDAMINE
     Indication: Prophylaxis
     Dosage: UNK
     Route: 065
     Dates: start: 20200819
  33. MORPHINE SULFATE [Suspect]
     Active Substance: MORPHINE SULFATE
     Indication: Pain
     Dosage: 1 DAILY
     Route: 065
     Dates: start: 20200727
  34. FLUCONAZOLE [Suspect]
     Active Substance: FLUCONAZOLE
     Indication: Candida infection
     Dosage: UNK
     Route: 065
  35. FLUCONAZOLE [Suspect]
     Active Substance: FLUCONAZOLE
     Dosage: UNK, DAILY
     Route: 065
  36. FLUCONAZOLE [Suspect]
     Active Substance: FLUCONAZOLE
     Dosage: UNK, DAILY
     Route: 065
  37. FLUCONAZOLE [Suspect]
     Active Substance: FLUCONAZOLE
     Dosage: UNK, DAILY
  38. FLUCONAZOLE [Suspect]
     Active Substance: FLUCONAZOLE
     Dosage: UNK, DAILY
  39. ATEZOLIZUMAB [Suspect]
     Active Substance: ATEZOLIZUMAB
     Indication: Non-small cell lung cancer
     Dosage: 1200 MG WEEKLY (MOST RECENT DOSE OF ATEZOLIZUMAB PRIOR TO ADVERSE EVENT (NAUSEA) ONSET ON 19/AUG/202
     Route: 041
     Dates: start: 20200729
  40. ATEZOLIZUMAB [Suspect]
     Active Substance: ATEZOLIZUMAB
     Indication: Small cell lung cancer
  41. ATEZOLIZUMAB [Suspect]
     Active Substance: ATEZOLIZUMAB
     Indication: Transitional cell carcinoma
  42. LACTULOSE [Suspect]
     Active Substance: LACTULOSE
     Indication: Prophylaxis
     Dosage: UNKNOWN
     Route: 065
  43. LACTULOSE [Suspect]
     Active Substance: LACTULOSE
     Dosage: UNK, 0.5 DAY
     Route: 065
  44. LACTULOSE [Suspect]
     Active Substance: LACTULOSE
     Dosage: 0.5 UNK, DAILY
     Route: 065
  45. LACTULOSE [Suspect]
     Active Substance: LACTULOSE
     Dosage: 0.5 DAILY
  46. LACTULOSE [Suspect]
     Active Substance: LACTULOSE
     Dosage: UNK UNK, Q12H
  47. LACTULOSE [Suspect]
     Active Substance: LACTULOSE
     Dosage: 0.5 DAILY
  48. LACTULOSE [Suspect]
     Active Substance: LACTULOSE
     Route: 065
  49. ACETAMINOPHEN\CODEINE PHOSPHATE [Suspect]
     Active Substance: ACETAMINOPHEN\CODEINE PHOSPHATE
     Indication: Pain
     Dosage: UNK
     Route: 065
  50. ACETAMINOPHEN\CODEINE PHOSPHATE [Suspect]
     Active Substance: ACETAMINOPHEN\CODEINE PHOSPHATE
     Dosage: UNK, 0.5 DAY
     Route: 065
  51. ACETAMINOPHEN\CODEINE PHOSPHATE [Suspect]
     Active Substance: ACETAMINOPHEN\CODEINE PHOSPHATE
     Dosage: 0.5 UNK, DAILY
     Route: 065
  52. ACETAMINOPHEN\CODEINE PHOSPHATE [Suspect]
     Active Substance: ACETAMINOPHEN\CODEINE PHOSPHATE
     Dosage: 0.5 DAILY
  53. ACETAMINOPHEN\CODEINE PHOSPHATE [Suspect]
     Active Substance: ACETAMINOPHEN\CODEINE PHOSPHATE
     Dosage: 0.5 DAILY
  54. VENLAFAXINE [Suspect]
     Active Substance: VENLAFAXINE HYDROCHLORIDE
     Indication: Depression
     Dosage: UNK
     Route: 065
  55. VENLAFAXINE [Suspect]
     Active Substance: VENLAFAXINE HYDROCHLORIDE
     Dosage: UNK, 0.5  DAILY
     Route: 065
     Dates: start: 20200820
  56. VENLAFAXINE [Suspect]
     Active Substance: VENLAFAXINE HYDROCHLORIDE
     Dosage: UNK, DAILY
  57. VENLAFAXINE [Suspect]
     Active Substance: VENLAFAXINE HYDROCHLORIDE
     Route: 065
  58. ALBUTEROL [Suspect]
     Active Substance: ALBUTEROL
     Indication: Prophylaxis
     Dosage: UNK
     Route: 065
  59. ZOPICLONE [Suspect]
     Active Substance: ZOPICLONE
     Indication: Prophylaxis
     Dosage: UNK, DAILY
     Route: 065
     Dates: start: 20200731
  60. DEXAMETHASONE [Suspect]
     Active Substance: DEXAMETHASONE
     Indication: Dysphagia
     Dosage: UNK, DAILY
     Route: 065
     Dates: start: 20200826
  61. ETOPOSIDE [Suspect]
     Active Substance: ETOPOSIDE
     Indication: Non-small cell lung cancer
     Dosage: 148 MG, UNK
     Route: 065
     Dates: start: 20200729
  62. ETOPOSIDE [Suspect]
     Active Substance: ETOPOSIDE
     Dosage: 600 MG, DAILY
     Route: 048
     Dates: start: 20200730
  63. SANDO K                            /00209301/ [Concomitant]
     Indication: Prophylaxis
     Dosage: UNK
     Route: 065
     Dates: start: 20200828, end: 20200901
  64. SANDO K                            /00209301/ [Concomitant]
     Dosage: UNK
     Route: 065
     Dates: start: 20200819
  65. SANDO K                            /00209301/ [Concomitant]
     Dosage: UNK, 0.5 DAY
     Route: 065
  66. SANDO K                            /00209301/ [Concomitant]
     Dosage: UNK, 0.5 DAY
     Route: 065
  67. SANDO K                            /00209301/ [Concomitant]
     Dosage: UNK, 0.5 DAY
  68. SANDO K                            /00209301/ [Concomitant]
     Dosage: UNK, 0.5 DAY
  69. PHOSPHORIC ACID [Concomitant]
     Active Substance: PHOSPHORIC ACID
     Indication: Product used for unknown indication
     Dosage: UNK
     Route: 065

REACTIONS (18)
  - Dysphagia [Not Recovered/Not Resolved]
  - Nausea [Recovered/Resolved]
  - Neutropenic sepsis [Not Recovered/Not Resolved]
  - Hypokalaemia [Recovered/Resolved]
  - Neutrophil count decreased [Recovered/Resolved]
  - Decreased appetite [Recovered/Resolved]
  - Mucosal inflammation [Not Recovered/Not Resolved]
  - Depression [Not Recovered/Not Resolved]
  - Productive cough [Not Recovered/Not Resolved]
  - Diarrhoea [Recovered/Resolved]
  - Anaemia [Recovered/Resolved]
  - Dehydration [Not Recovered/Not Resolved]
  - Hypomagnesaemia [Recovered/Resolved]
  - Skin candida [Not Recovered/Not Resolved]
  - Dyspnoea [Not Recovered/Not Resolved]
  - Mouth ulceration [Recovered/Resolved]
  - Constipation [Not Recovered/Not Resolved]
  - Headache [Not Recovered/Not Resolved]

NARRATIVE: CASE EVENT DATE: 20200730
